FAERS Safety Report 17102043 (Version 2)
Quarter: 2020Q1

REPORT INFORMATION
  Report Type: Report from Study
  Country: CA (occurrence: CA)
  Receive Date: 20191202
  Receipt Date: 20200120
  Transmission Date: 20200409
  Serious: Yes (Hospitalization)
  Sender: FDA-Public Use
  Company Number: CA-HLSUS-2019-CA-001392

PATIENT
  Age: 67 Year
  Sex: Female

DRUGS (12)
  1. HALDOL [Concomitant]
     Active Substance: HALOPERIDOL
  2. COGENTIN [Concomitant]
     Active Substance: BENZTROPINE MESYLATE
     Indication: DYSTONIA
     Dosage: 0.5 TO 1 MG
  3. ATROPINE SULFATE. [Concomitant]
     Active Substance: ATROPINE SULFATE
  4. BENZTROPINE MESYLATE. [Concomitant]
     Active Substance: BENZTROPINE MESYLATE
  5. LORAZEPAM. [Concomitant]
     Active Substance: LORAZEPAM
     Indication: ANXIETY
  6. CLOZARIL [Suspect]
     Active Substance: CLOZAPINE
     Indication: PSYCHOTIC DISORDER
     Dosage: QHS
     Route: 048
     Dates: start: 20030604, end: 20191026
  7. ABILIFY [Concomitant]
     Active Substance: ARIPIPRAZOLE
     Dosage: QAM
     Route: 048
     Dates: start: 201503, end: 201911
  8. POLYETHYLENE GLYCOL 3350. [Concomitant]
     Active Substance: POLYETHYLENE GLYCOL 3350
     Route: 048
  9. HALOPERIDOL. [Concomitant]
     Active Substance: HALOPERIDOL
  10. ABILIFY [Concomitant]
     Active Substance: ARIPIPRAZOLE
     Dosage: QAM
     Route: 048
     Dates: start: 201503, end: 201911
  11. ZOPICLONE [Concomitant]
     Active Substance: ZOPICLONE
  12. LEVOTHYROXINE SODIUM. [Concomitant]
     Active Substance: LEVOTHYROXINE SODIUM
     Indication: HYPOTHYROIDISM

REACTIONS (5)
  - Tardive dyskinesia [Unknown]
  - Neutropenia [Unknown]
  - Sleep disorder [Unknown]
  - Psychotic disorder [Unknown]
  - Leukopenia [Unknown]

NARRATIVE: CASE EVENT DATE: 20191011
